FAERS Safety Report 5390722-0 (Version None)
Quarter: 2007Q3

REPORT INFORMATION
  Report Type: 
  Country: None (occurrence: None)
  Receive Date: 20070716
  Receipt Date: 20060418
  Transmission Date: 20080115
  Serious: Yes (Disabling)
  Sender: FDA-Public Use
  Company Number: MPS1-10524

PATIENT
  Age: 11 Year
  Sex: Female

DRUGS (7)
  1. ALDURAZYME [Suspect]
     Indication: MUCOPOLYSACCHARIDOSIS IH/S
  2. FUROSEMIDE [Concomitant]
  3. SPIRONOLACTONE [Concomitant]
  4. DIGOXIN [Concomitant]
  5. CAPTOPRIL [Concomitant]
  6. SEREVENT [Concomitant]
  7. BECOTIDE [Concomitant]

REACTIONS (2)
  - LUNG DISORDER [None]
  - PULMONARY HYPERTENSION [None]
